FAERS Safety Report 22284737 (Version 1)
Quarter: 2023Q2

REPORT INFORMATION
  Report Type: Other
  Country: CN (occurrence: None)
  Receive Date: 20230504
  Receipt Date: 20230504
  Transmission Date: 20230722
  Serious: Yes (Other)
  Sender: FDA-Public Use
  Company Number: CN-ROCHE-3343291

PATIENT
  Age: 57 Year
  Sex: Male

DRUGS (4)
  1. BEVACIZUMAB [Suspect]
     Active Substance: BEVACIZUMAB
     Indication: Undifferentiated nasopharyngeal carcinoma
     Route: 065
  2. GEMCITABINE [Suspect]
     Active Substance: GEMCITABINE
     Indication: Undifferentiated nasopharyngeal carcinoma
     Route: 065
  3. CARBOPLATIN [Suspect]
     Active Substance: CARBOPLATIN
     Indication: Undifferentiated nasopharyngeal carcinoma
     Route: 065
  4. NIVOLUMAB [Suspect]
     Active Substance: NIVOLUMAB
     Indication: Undifferentiated nasopharyngeal carcinoma
     Route: 065

REACTIONS (3)
  - Disease progression [Unknown]
  - Metastases to lymph nodes [Unknown]
  - Metastases to bone [Unknown]
